FAERS Safety Report 16534383 (Version 2)
Quarter: 2019Q3

REPORT INFORMATION
  Report Type: Spontaneous
  Country: DE (occurrence: DE)
  Receive Date: 20190705
  Receipt Date: 20190711
  Transmission Date: 20191004
  Serious: Yes (Other)
  Sender: FDA-Public Use
  Company Number: PHHY2019DE008950

PATIENT
  Age: 44 Year
  Sex: Female

DRUGS (5)
  1. METHYLPREDNISOLONE. [Suspect]
     Active Substance: METHYLPREDNISOLONE
     Indication: MULTIPLE SCLEROSIS
     Dosage: 2 G, QD ON THREE CONSECUTIVE DAYS
     Route: 042
  2. ALEMTUZUMAB [Suspect]
     Active Substance: ALEMTUZUMAB
     Indication: RELAPSING-REMITTING MULTIPLE SCLEROSIS
     Dosage: 12 MG, QD
     Route: 065
  3. METHYLPREDNISOLONE. [Suspect]
     Active Substance: METHYLPREDNISOLONE
     Dosage: 1 G, QD
     Route: 042
  4. METHYLPREDNISOLONE. [Suspect]
     Active Substance: METHYLPREDNISOLONE
     Dosage: 2 G, QD (ONE WEEK LATER)
     Route: 042
  5. ALEMTUZUMAB [Suspect]
     Active Substance: ALEMTUZUMAB
     Dosage: 12 MG, QD
     Route: 065

REACTIONS (9)
  - Dizziness [Recovered/Resolved]
  - Hypoaesthesia [Recovered/Resolved]
  - Sensorimotor disorder [Unknown]
  - Paresis [Recovered/Resolved]
  - Sarcoidosis [Recovered/Resolved]
  - Therapeutic response decreased [Recovered/Resolved]
  - Multiple sclerosis relapse [Recovered/Resolved]
  - Nystagmus [Recovered/Resolved]
  - Erythema nodosum [Recovered/Resolved]
